FAERS Safety Report 7956982-4 (Version None)
Quarter: 2011Q4

REPORT INFORMATION
  Report Type: 
  Country: None (occurrence: None)
  Receive Date: 20111205
  Receipt Date: 20111205
  Transmission Date: 20120403
  Serious: Yes (Death, Hospitalization)
  Sender: FDA-Public Use
  Company Number: None

PATIENT
  Age: 82 Year
  Sex: Female

DRUGS (17)
  1. FERROUS SULFATE TAB [Concomitant]
     Route: 048
  2. METOPROLOL TARTRATE [Concomitant]
     Route: 048
  3. PANTOPRAZOLE [Concomitant]
     Route: 048
  4. LINEZOLID [Concomitant]
     Route: 042
  5. NITROGLYCERIN [Concomitant]
     Route: 060
  6. THERAPEUTIC VIT-MINER [Concomitant]
     Route: 048
  7. INSULIN GLARGINE [Concomitant]
     Route: 058
  8. AMLODIPINE [Concomitant]
     Route: 048
  9. POTASSIUM CHLORIDE [Concomitant]
     Route: 048
  10. ISOSORBIDE MONONITRATE [Concomitant]
     Route: 048
  11. LOSARTAN POTASSIUM [Concomitant]
     Route: 048
  12. VANCOMYCIN [Suspect]
     Indication: STAPHYLOCOCCAL BACTERAEMIA
     Dosage: 1 GRAM
     Route: 041
     Dates: start: 20110721, end: 20110805
  13. MEGESTROL ACETATE [Concomitant]
     Route: 048
  14. GENTAMICIN SULFATE [Concomitant]
     Indication: STAPHYLOCOCCAL BACTERAEMIA
     Dosage: 240 MG
     Route: 041
     Dates: start: 20110726, end: 20110801
  15. HEPARIN [Concomitant]
     Route: 058
  16. OXYCODONE HCL AND ACETAMINOPHEN [Concomitant]
     Route: 048
  17. SIMVASTATIN [Concomitant]
     Route: 048

REACTIONS (5)
  - BLOOD CREATININE INCREASED [None]
  - ANTIBIOTIC RESISTANT STAPHYLOCOCCUS TEST POSITIVE [None]
  - TOXICITY TO VARIOUS AGENTS [None]
  - BILE CULTURE POSITIVE [None]
  - RENAL IMPAIRMENT [None]
